FAERS Safety Report 5125796-5 (Version None)
Quarter: 2006Q4

REPORT INFORMATION
  Report Type: 
  Country: None (occurrence: None)
  Receive Date: 20061010
  Receipt Date: 20061010
  Transmission Date: 20070319
  Serious: Yes (Other)
  Sender: FDA-Public Use
  Company Number: None

PATIENT
  Sex: Male
  Weight: 52.1637 kg

DRUGS (2)
  1. ALBUTEROL SULFATE HFA 108MCG PER ACTIVATION IVAX LABORATORIES INC., MI [Suspect]
     Indication: ASTHMA
     Dosage: SEE IMAGE
     Route: 055
  2. ALBUTEROL SULFATE HFA 108MCG PER ACTIVATION IVAX LABORATORIES INC., MI [Suspect]
     Indication: ASTHMA
     Dosage: SEE IMAGE
     Route: 055

REACTIONS (11)
  - CONSTIPATION [None]
  - DISTURBANCE IN ATTENTION [None]
  - DRUG WITHDRAWAL SYNDROME [None]
  - ERECTILE DYSFUNCTION [None]
  - FEELING JITTERY [None]
  - HUNGER [None]
  - INCREASED APPETITE [None]
  - INSOMNIA [None]
  - METABOLIC DISORDER [None]
  - PHARMACEUTICAL PRODUCT COMPLAINT [None]
  - WEIGHT INCREASED [None]
